FAERS Safety Report 16072030 (Version 4)
Quarter: 2019Q2

REPORT INFORMATION
  Report Type: Spontaneous
  Country: DE (occurrence: DE)
  Receive Date: 20190314
  Receipt Date: 20190417
  Transmission Date: 20190711
  Serious: Yes (Hospitalization)
  Sender: FDA-Public Use
  Company Number: DE-AMREGENT-20190436

PATIENT
  Age: 9 Month
  Sex: Male
  Weight: 9.4 kg

DRUGS (5)
  1. FERRO SANOL [Concomitant]
     Active Substance: FERROUS GLYCINE SULFATE
     Dosage: UNKNOWN
     Route: 065
  2. ESOMEPRAZOLE. [Concomitant]
     Active Substance: ESOMEPRAZOLE MAGNESIUM
     Dosage: UNKNOWN
     Route: 065
  3. VENOFER [Suspect]
     Active Substance: IRON SUCROSE
     Dosage: 250 MG
     Route: 041
     Dates: start: 20190131
  4. CALCITRIOL. [Concomitant]
     Active Substance: CALCITRIOL
     Dosage: UNKNOWN
     Route: 065
  5. VIGANTOLETTEN [Concomitant]
     Active Substance: CHOLECALCIFEROL
     Dosage: 500 IU (500 IU,1 IN 1 D)
     Route: 065

REACTIONS (13)
  - Urticaria [Recovered/Resolved]
  - Vomiting [Recovered/Resolved]
  - Parasomnia [Recovered/Resolved]
  - Fatigue [Recovered/Resolved]
  - Blood iron increased [Recovered/Resolved]
  - Peripheral swelling [Recovered/Resolved]
  - Accidental overdose [Recovered/Resolved]
  - Circumstance or information capable of leading to medication error [Unknown]
  - Inappropriate schedule of product administration [Recovered/Resolved]
  - Medication error [Recovered/Resolved]
  - Adverse drug reaction [Recovered/Resolved]
  - Faeces discoloured [Recovered/Resolved]
  - Rash [Recovered/Resolved]

NARRATIVE: CASE EVENT DATE: 2019
